FAERS Safety Report 6684184-0 (Version None)
Quarter: 2010Q2

REPORT INFORMATION
  Report Type: 
  Country: None (occurrence: None)
  Receive Date: 20100416
  Receipt Date: 20100414
  Transmission Date: 20101027
  Serious: Yes (Other)
  Sender: FDA-Public Use
  Company Number: IE-ROXANE LABORATORIES, INC.-2010-RO-00419RO

PATIENT

DRUGS (1)
  1. MORPHINE [Suspect]

REACTIONS (1)
  - DRUG PRESCRIBING ERROR [None]
